FAERS Safety Report 8369506-7 (Version None)
Quarter: 2012Q2

REPORT INFORMATION
  Report Type: 
  Country: None (occurrence: None)
  Receive Date: 20120517
  Receipt Date: 20120517
  Transmission Date: 20120825
  Serious: No
  Sender: FDA-Public Use
  Company Number: None

PATIENT
  Sex: Male
  Weight: 70.3075 kg

DRUGS (2)
  1. LEVOFLOXACIN [Suspect]
     Indication: TRANSURETHRAL PROSTATECTOMY
     Dosage: 500MG QD PO
     Route: 048
     Dates: start: 20120416, end: 20120423
  2. LEVOFLOXACIN [Suspect]
     Indication: POSTOPERATIVE CARE
     Dosage: 500MG QD PO
     Route: 048
     Dates: start: 20120416, end: 20120423

REACTIONS (3)
  - PRODUCT SUBSTITUTION ISSUE [None]
  - NAUSEA [None]
  - PRODUCT QUALITY ISSUE [None]
